FAERS Safety Report 6017580-5 (Version None)
Quarter: 2008Q4

REPORT INFORMATION
  Report Type: 
  Country: None (occurrence: None)
  Receive Date: 20081223
  Receipt Date: 20081216
  Transmission Date: 20090506
  Serious: Yes (Other)
  Sender: FDA-Public Use
  Company Number: ES-PFIZER INC-2008157030

PATIENT

DRUGS (9)
  1. NITRADISC [Suspect]
     Indication: CARDIAC DISORDER
     Dosage: 5 G, 1X/DAY
     Route: 062
     Dates: start: 19971201
  2. ADIRO [Suspect]
     Indication: CARDIAC DISORDER
     Dosage: 200 MG, 1X/DAY
     Route: 048
     Dates: start: 19971201
  3. FERROUS SULPHATE [Suspect]
     Indication: IRON DEFICIENCY ANAEMIA
     Dosage: ;
     Route: 048
     Dates: start: 19971201
  4. FLUIMUCIL [Suspect]
     Indication: COUGH
     Dosage: 200 MG, 3X/DAY
     Route: 048
     Dates: start: 19980216
  5. SEGURIL [Suspect]
     Indication: CARDIAC DISORDER
     Dosage: 40 MG, 1X/DAY
     Route: 048
     Dates: start: 19971201
  6. SEKISAN [Suspect]
     Indication: COUGH
     Dosage: 45 ML, 1X/DAY
     Route: 048
     Dates: start: 19980216
  7. STILNOX [Suspect]
     Dosage: 10 MG, UNK
     Route: 048
     Dates: start: 19971201
  8. ZANTAC [Suspect]
     Dosage: UNK
     Route: 048
     Dates: start: 19971201
  9. ALLOPURINOL [Suspect]
     Indication: BLOOD TEST ABNORMAL
     Dosage: UNK
     Route: 048
     Dates: start: 19971201

REACTIONS (1)
  - STEVENS-JOHNSON SYNDROME [None]
